FAERS Safety Report 6794452-X (Version None)
Quarter: 2010Q2

REPORT INFORMATION
  Report Type: 
  Country: None (occurrence: None)
  Receive Date: 20100625
  Receipt Date: 20100609
  Transmission Date: 20101027
  Serious: Yes (Hospitalization, Other)
  Sender: FDA-Public Use
  Company Number: US-BAYER-200938991NA

PATIENT
  Age: 23 Year
  Sex: Female
  Weight: 84 kg

DRUGS (8)
  1. YAZ [Suspect]
     Indication: DRUG USE FOR UNKNOWN INDICATION
     Route: 048
     Dates: start: 20060101, end: 20060901
  2. YASMIN [Suspect]
     Indication: DRUG USE FOR UNKNOWN INDICATION
     Route: 048
     Dates: start: 20060101, end: 20060901
  3. TOPROL-XL [Concomitant]
     Dates: start: 20050101, end: 20070101
  4. EXCEDRIN (MIGRAINE) [Concomitant]
  5. ALBUTEROL [Concomitant]
  6. ZOLOFT [Concomitant]
     Dates: start: 20100101
  7. ASPIRIN [Concomitant]
     Dates: start: 20060101
  8. IBUPROFEN [Concomitant]

REACTIONS (2)
  - PULMONARY EMBOLISM [None]
  - THROMBOSIS [None]
